FAERS Safety Report 4370358-0 (Version None)
Quarter: 2004Q2

REPORT INFORMATION
  Report Type: 
  Country: None (occurrence: None)
  Receive Date: 20040603
  Receipt Date: 20040217
  Transmission Date: 20050107
  Serious: No
  Sender: FDA-Public Use
  Company Number: US-BRISTOL-MYERS SQUIBB COMPANY-12509154

PATIENT
  Age: 45 Year
  Sex: Male

DRUGS (8)
  1. ABILIFY [Suspect]
     Indication: SCHIZOPHRENIA
     Route: 048
  2. METFORMIN HCL [Concomitant]
  3. GLUCAZIDE [Concomitant]
  4. LISINOPRIL [Concomitant]
  5. NIFEDIPINE [Concomitant]
  6. SIMVASTATIN [Concomitant]
  7. GEODON [Concomitant]
  8. QUETIAPINE [Concomitant]

REACTIONS (1)
  - ANAEMIA [None]
